FAERS Safety Report 8175092-7 (Version None)
Quarter: 2012Q1

REPORT INFORMATION
  Report Type: 
  Country: None (occurrence: None)
  Receive Date: 20120229
  Receipt Date: 20120222
  Transmission Date: 20120608
  Serious: Yes (Hospitalization, Other)
  Sender: FDA-Public Use
  Company Number: PHHY2011JP89726

PATIENT
  Sex: Male
  Weight: 51 kg

DRUGS (22)
  1. SUMATRIPTAN SUCCINATE [Concomitant]
     Dosage: 50 MG
     Route: 048
  2. VERAPAMIL HCL [Concomitant]
     Dosage: 120 MG, UNK
     Route: 048
     Dates: start: 20111027, end: 20111110
  3. RABEPRAZOLE SODIUM [Concomitant]
     Indication: PROPHYLAXIS
     Dosage: 10 MG, UNK
     Route: 048
     Dates: start: 20111111
  4. SENNOSIDE [Concomitant]
     Indication: PROPHYLAXIS
     Dosage: 24 MG, UNK
     Route: 048
     Dates: start: 20111112, end: 20111112
  5. VESICARE [Concomitant]
     Dosage: 5 MG, UNK
     Route: 048
     Dates: start: 20111113
  6. BACTRIM [Concomitant]
  7. AFINITOR [Suspect]
     Indication: METASTATIC RENAL CELL CARCINOMA
     Dosage: 10 MG, DAILY
     Route: 048
     Dates: start: 20110728, end: 20110803
  8. AMOBANTES [Concomitant]
     Dosage: 7.5 MG, UNK
     Route: 048
     Dates: start: 20111115
  9. INTERFERON ALFA [Concomitant]
     Indication: METASTATIC RENAL CELL CARCINOMA
     Dates: start: 20080623, end: 20090123
  10. SORAFENIB TOSILATE [Concomitant]
     Indication: METASTATIC RENAL CELL CARCINOMA
     Dosage: 800 MG, UNK
     Route: 048
     Dates: start: 20090209, end: 20100304
  11. ROHYPNOL [Concomitant]
     Dosage: 1 MG, UNK
     Route: 048
     Dates: start: 20111116
  12. UREPEARL [Concomitant]
     Indication: PROPHYLAXIS
     Route: 061
     Dates: end: 20110914
  13. MAGMITT KENEI [Concomitant]
     Indication: PROPHYLAXIS
     Dosage: 750 MG, UNK
     Route: 048
     Dates: start: 20111111
  14. FAMOTIDINE [Concomitant]
     Indication: PROPHYLAXIS
     Dosage: 20 MG
     Route: 048
     Dates: start: 20110802
  15. URIEF [Concomitant]
     Dosage: 8 MG, UNK
     Route: 048
     Dates: start: 20111113
  16. KENALOG [Concomitant]
     Indication: PROPHYLAXIS
     Dates: end: 20110914
  17. AZUNOL [Concomitant]
     Indication: PROPHYLAXIS
  18. SELBEX [Concomitant]
     Indication: PROPHYLAXIS
     Dosage: 50 MG
     Route: 048
     Dates: start: 20110803, end: 20110803
  19. ACETAMINOPHEN [Concomitant]
     Indication: METASTATIC RENAL CELL CARCINOMA
     Dosage: 800 MG, UNK
     Route: 048
     Dates: start: 20111013
  20. AFINITOR [Suspect]
     Dosage: 10 MG, DAILY
     Route: 048
     Dates: start: 20110806
  21. SUNITINIB MALATE [Concomitant]
     Indication: METASTATIC RENAL CELL CARCINOMA
     Route: 048
     Dates: start: 20100423, end: 20110713
  22. ATELEC [Concomitant]
     Dosage: 10 MG, UNK
     Dates: start: 20111020, end: 20111026

REACTIONS (5)
  - INTERSTITIAL LUNG DISEASE [None]
  - ANAEMIA [None]
  - LYMPHOCYTE COUNT DECREASED [None]
  - PNEUMOCYSTIS TEST POSITIVE [None]
  - HYPERKALAEMIA [None]
